FAERS Safety Report 15567053 (Version 2)
Quarter: 2018Q4

REPORT INFORMATION
  Report Type: Spontaneous
  Country: JP (occurrence: JP)
  Receive Date: 20181030
  Receipt Date: 20181120
  Transmission Date: 20190205
  Serious: Yes (Other)
  Sender: FDA-Public Use
  Company Number: JP-NAPPMUNDI-GBR-2018-0059526

PATIENT

DRUGS (3)
  1. OXIFAST [Suspect]
     Active Substance: OXYCODONE
     Indication: PRODUCT USED FOR UNKNOWN INDICATION
     Dosage: 110 MG, DAILY
     Route: 065
     Dates: start: 20180905
  2. CISPLATIN. [Concomitant]
     Active Substance: CISPLATIN
  3. OXIFAST [Suspect]
     Active Substance: OXYCODONE
     Dosage: 80 MG, DAILY
     Route: 065
     Dates: start: 20180904, end: 20180904

REACTIONS (1)
  - Deafness [Unknown]
